FAERS Safety Report 17490167 (Version 1)
Quarter: 2020Q1

REPORT INFORMATION
  Report Type: Spontaneous
  Country: US (occurrence: US)
  Receive Date: 20200303
  Receipt Date: 20200303
  Transmission Date: 20200409
  Serious: No
  Sender: FDA-Public Use
  Company Number: US-AKORN PHARMACEUTICALS-2019AKN01949

PATIENT
  Sex: Female
  Weight: 74.5 kg

DRUGS (27)
  1. ZYRTEC [Concomitant]
     Active Substance: CETIRIZINE HYDROCHLORIDE
     Dosage: 10 MG, 1X/DAY
     Route: 048
  2. ALBUTEROL SULFATE. [Concomitant]
     Active Substance: ALBUTEROL SULFATE
     Dosage: 2 MG, AS NEEDED
     Route: 048
  3. NATURE-THROID [Concomitant]
     Active Substance: THYROID, PORCINE
     Dosage: 15.25 MG, 1X/DAY
     Route: 048
  4. ACETYL L-CARNITINE [Concomitant]
     Active Substance: ACETYLCARNITINE
     Dosage: 1000 MG
  5. CALCIUM [Concomitant]
     Active Substance: CALCIUM
     Dosage: 500 MG
  6. UBIQUINOL COQH [Concomitant]
     Dosage: 100 MG
  7. CARISOPRODOL. [Concomitant]
     Active Substance: CARISOPRODOL
     Dosage: 350 MG, AS NEEDED
     Route: 048
  8. HYDROXOCOBALAMIN [Concomitant]
     Active Substance: HYDROXOCOBALAMIN
     Dosage: 5 G, 1X/WEEK
     Route: 042
  9. ZOLMITRIPTAN. [Concomitant]
     Active Substance: ZOLMITRIPTAN
     Dosage: 2.5 MG, AS NEEDED
     Route: 048
  10. PROBIOTIC [Concomitant]
     Active Substance: PROBIOTICS NOS
  11. VITAMIN E [Concomitant]
     Active Substance: .ALPHA.-TOCOPHEROL
     Dosage: 400 - 800 U
  12. CLONAZEPAM. [Concomitant]
     Active Substance: CLONAZEPAM
     Dosage: 0.25 MG, 4X/DAY
     Route: 048
  13. DUAVEE [Concomitant]
     Active Substance: BAZEDOXIFENE ACETATE\ESTROGENS, CONJUGATED
     Dosage: 1 TABLETS, 1X/DAY
     Route: 048
  14. NALTREXONE BUPROPION [Concomitant]
     Dosage: 4.5 MG, 1X/DAY
     Route: 048
  15. NORTRIPTYLINE [Concomitant]
     Active Substance: NORTRIPTYLINE
     Dosage: 225 MG, 1X/DAY
     Route: 048
  16. ALPHA LIPOIC ACID [Concomitant]
     Active Substance: .ALPHA.-LIPOIC ACID
     Dosage: 600 MG
  17. METHYLSULFONYLMETHANE (MSM) [Concomitant]
     Dosage: 1000 MG
  18. ZINC. [Concomitant]
     Active Substance: ZINC
     Dosage: 30 MG
  19. IMUNOVIR/ISOPRINOSINE/INOSINE [Concomitant]
     Dosage: 500 MG
  20. MULTIVITAMIN [Concomitant]
     Active Substance: VITAMINS
  21. ZOLPIDEM [Concomitant]
     Active Substance: ZOLPIDEM TARTRATE
     Dosage: 10 MG, 1X/DAY
     Route: 048
  22. MYORISAN [Suspect]
     Active Substance: ISOTRETINOIN
     Indication: ACNE
     Dosage: 30 MG, 2X/DAY
     Route: 048
     Dates: start: 20190621, end: 20190718
  23. CELEXA [Concomitant]
     Active Substance: CITALOPRAM HYDROBROMIDE
     Dosage: 40 MG, 1X/DAY
     Route: 048
  24. N-ACETYL CYSTEINE [Concomitant]
     Active Substance: ACETYLCYSTEINE
     Dosage: 600-2400 MG
  25. TRAZODONE [Concomitant]
     Active Substance: TRAZODONE HYDROCHLORIDE
     Dosage: 100 MG, 1X/DAY
     Route: 048
  26. VITAMIN B-100 COMPLEX [Concomitant]
  27. VITAMIN D3 [Concomitant]
     Active Substance: CHOLECALCIFEROL
     Dosage: 5000 U

REACTIONS (1)
  - Haematochezia [Recovered/Resolved]

NARRATIVE: CASE EVENT DATE: 2019
